FAERS Safety Report 5222695-5 (Version None)
Quarter: 2007Q1

REPORT INFORMATION
  Report Type: 
  Country: None (occurrence: None)
  Receive Date: 20070124
  Receipt Date: 20070117
  Transmission Date: 20070707
  Serious: Yes (Death, Other)
  Sender: FDA-Public Use
  Company Number: 083-20785-07010800

PATIENT

DRUGS (4)
  1. THALOMID [Suspect]
     Indication: MULTIPLE MYELOMA
     Dosage: 50 MG, DAILY FOR 35 DAYS, ORAL
     Route: 048
     Dates: start: 20041101, end: 20050801
  2. BORTEZOMIB (BORTEZOMIB) [Suspect]
     Indication: MULTIPLE MYELOMA
     Dosage: 1 MG/M2, DAYS 1, 4, 5, 15, AND 22, INTRAVENOUS
     Route: 042
     Dates: start: 20041101, end: 20050801
  3. MELPHALAN (MELPHALAN) [Suspect]
     Indication: MULTIPLE MYELOMA
     Dosage: 6 MG/M2, DAILY FOR 5 DAYS, ORAL
     Route: 048
     Dates: start: 20041101, end: 20050801
  4. PREDNISONE TAB [Suspect]
     Indication: MULTIPLE MYELOMA
     Dosage: 60 MG/M2, DAILY FOR 5 DAYS, 30 DAY REST PERIOD, ORAL
     Route: 048
     Dates: start: 20041101, end: 20050801

REACTIONS (30)
  - ANAEMIA [None]
  - BLOOD DISORDER [None]
  - BONE MARROW FAILURE [None]
  - CONFUSIONAL STATE [None]
  - CONSTIPATION [None]
  - DISEASE PROGRESSION [None]
  - DISEASE RECURRENCE [None]
  - DRUG TOXICITY [None]
  - EXTRASYSTOLES [None]
  - FATIGUE [None]
  - FEBRILE NEUTROPENIA [None]
  - GASTROINTESTINAL DISORDER [None]
  - HAEMATOTOXICITY [None]
  - HERPES ZOSTER [None]
  - INFECTION [None]
  - NAUSEA [None]
  - NEUROPATHY [None]
  - NEUROPATHY PERIPHERAL [None]
  - NEUROTOXICITY [None]
  - OESOPHAGEAL CANDIDIASIS [None]
  - OESOPHAGITIS [None]
  - PERIPHERAL SENSORY NEUROPATHY [None]
  - PHLEBITIS [None]
  - PNEUMONIA [None]
  - PYREXIA [None]
  - RASH [None]
  - SINUS BRADYCARDIA [None]
  - THROMBOCYTOPENIA [None]
  - TREMOR [None]
  - VASCULITIS [None]
